FAERS Safety Report 7597529-4 (Version None)
Quarter: 2011Q3

REPORT INFORMATION
  Report Type: 
  Country: None (occurrence: None)
  Receive Date: 20110708
  Receipt Date: 20110629
  Transmission Date: 20111222
  Serious: Yes (Disabling, Other)
  Sender: FDA-Public Use
  Company Number: US-ROCHE-665311

PATIENT
  Sex: Female
  Weight: 46.7 kg

DRUGS (11)
  1. RETIN-A [Concomitant]
  2. SONATA [Concomitant]
  3. ACCUTANE [Suspect]
     Route: 065
     Dates: start: 19970906, end: 19971110
  4. SOTRET [Suspect]
     Indication: ROSACEA
     Route: 065
     Dates: start: 20040601, end: 20040801
  5. ESTRADIOL [Concomitant]
  6. ASPIRIN [Concomitant]
  7. ACCUTANE [Suspect]
     Indication: ACNE
     Dosage: OTHER INDICATION: ROSACEA
     Route: 065
     Dates: start: 19970606, end: 19970807
  8. ACCUTANE [Suspect]
     Route: 065
     Dates: start: 20040618, end: 20040718
  9. LEVOTHYROXINE SODIUM [Concomitant]
  10. LIPITOR [Concomitant]
  11. CALCIUM CARBONATE [Concomitant]

REACTIONS (41)
  - MENTAL DISORDER [None]
  - DISTURBANCE IN ATTENTION [None]
  - SACROILIITIS [None]
  - BURSITIS [None]
  - SMALL INTESTINAL OBSTRUCTION [None]
  - CHRONIC FATIGUE SYNDROME [None]
  - SLEEP DISORDER [None]
  - HERNIA [None]
  - FUNGAL INFECTION [None]
  - BLOOD CHOLESTEROL INCREASED [None]
  - COLITIS ULCERATIVE [None]
  - HYPOTHYROIDISM [None]
  - FAECALOMA [None]
  - RECTAL POLYP [None]
  - BLINDNESS [None]
  - FLIGHT OF IDEAS [None]
  - INSOMNIA [None]
  - ARTHRITIS [None]
  - HYPERKERATOSIS [None]
  - DECREASED APPETITE [None]
  - ABNORMAL BEHAVIOUR [None]
  - OEDEMA PERIPHERAL [None]
  - BLOOD TRIGLYCERIDES INCREASED [None]
  - CROHN'S DISEASE [None]
  - PROCTITIS [None]
  - DEPRESSION [None]
  - FIBROMYALGIA [None]
  - HAEMORRHOIDS [None]
  - ORAL HERPES [None]
  - APHTHOUS STOMATITIS [None]
  - HEADACHE [None]
  - GASTROOESOPHAGEAL REFLUX DISEASE [None]
  - SPEECH DISORDER [None]
  - ANAEMIA [None]
  - MEASLES [None]
  - SOMNOLENCE [None]
  - INFLAMMATORY BOWEL DISEASE [None]
  - RESTLESSNESS [None]
  - RECTAL HAEMORRHAGE [None]
  - HAEMATOCHEZIA [None]
  - FACET JOINT SYNDROME [None]
